FAERS Safety Report 11185349 (Version 1)
Quarter: 2015Q2

REPORT INFORMATION
  Report Type: Spontaneous
  Country: IT (occurrence: IT)
  Receive Date: 20150612
  Receipt Date: 20150612
  Transmission Date: 20150821
  Serious: Yes (Hospitalization, Other)
  Sender: FDA-Public Use
  Company Number: IT-PFIZER INC-2015197172

PATIENT
  Age: 63 Year
  Sex: Male

DRUGS (1)
  1. PANTOPRAZOLE SODIUM. [Suspect]
     Active Substance: PANTOPRAZOLE SODIUM
     Indication: GASTRITIS
     Dosage: 40 MG, DAILY
     Route: 048

REACTIONS (6)
  - Gait disturbance [Recovered/Resolved]
  - Hypomagnesaemia [Recovered/Resolved]
  - Ataxia [Recovered/Resolved]
  - Hypokalaemia [Recovered/Resolved]
  - Vertigo [Recovered/Resolved]
  - Seizure [Recovered/Resolved]

NARRATIVE: CASE EVENT DATE: 20140105
